FAERS Safety Report 9465690 (Version 1)
Quarter: 2013Q3

REPORT INFORMATION
  Report Type: Report from Study
  Country: CA (occurrence: CA)
  Receive Date: 20130820
  Receipt Date: 20130820
  Transmission Date: 20140515
  Serious: Yes (Other)
  Sender: FDA-Public Use
  Company Number: CA-JNJFOC-20130805238

PATIENT
  Sex: Male
  Weight: 117.94 kg

DRUGS (5)
  1. REMICADE [Suspect]
     Indication: PSORIATIC ARTHROPATHY
     Route: 042
  2. REMICADE [Suspect]
     Indication: PSORIATIC ARTHROPATHY
     Route: 042
  3. REMICADE [Suspect]
     Indication: PSORIATIC ARTHROPATHY
     Route: 042
     Dates: start: 20130726
  4. REMICADE [Suspect]
     Indication: PSORIATIC ARTHROPATHY
     Route: 042
     Dates: start: 2003
  5. CEPHALEXIN [Suspect]
     Indication: URTICARIA
     Route: 065

REACTIONS (5)
  - Swelling [Not Recovered/Not Resolved]
  - Inflammation [Unknown]
  - Acarodermatitis [Unknown]
  - Urticaria [Not Recovered/Not Resolved]
  - Skin disorder [Unknown]
